FAERS Safety Report 5355533-0 (Version None)
Quarter: 2007Q2

REPORT INFORMATION
  Report Type: 
  Country: None (occurrence: None)
  Receive Date: 20070530
  Receipt Date: 20061206
  Transmission Date: 20071010
  Serious: Yes (Hospitalization, Other)
  Sender: FDA-Public Use
  Company Number: US200609001086

PATIENT
  Age: 50 Year
  Sex: Male
  Weight: 90.7 kg

DRUGS (23)
  1. ZYPREXA [Suspect]
     Dosage: 5 MG
     Dates: end: 20020101
  2. THORAZINE [Concomitant]
  3. TEGRETOL [Concomitant]
  4. DEPAKOTE [Concomitant]
  5. LITHIUM CARBONATE [Concomitant]
  6. XANAX [Concomitant]
  7. LIBRIUM [Concomitant]
  8. WELLBUTRIN [Concomitant]
  9. CELEXA [Concomitant]
  10. DOXEPIN HCL [Concomitant]
  11. PROZAC [Concomitant]
  12. TOFRANIL-PM (IMIPRAMINE EMBONATE) [Concomitant]
  13. REMERON(MIRTAZAPIN) [Concomitant]
  14. PAXIL [Concomitant]
  15. ZOLOFT [Concomitant]
  16. LEXAPRO [Concomitant]
  17. RESTORIL [Concomitant]
  18. TENORMIN [Concomitant]
  19. INDERAL [Concomitant]
  20. DIURIL (CHLOROTHIAZIDE) [Concomitant]
  21. MICROZIDE [Concomitant]
  22. COMBID (ISOPROPAMIDE IODIDE, PROCHLORPERAZINE MESILATE) [Concomitant]
  23. VALIUM (DIAZEPM) [Concomitant]

REACTIONS (4)
  - DIABETES MELLITUS [None]
  - DIABETIC KETOACIDOSIS [None]
  - PANCREATITIS [None]
  - VISION BLURRED [None]
